FAERS Safety Report 23528970 (Version 1)
Quarter: 2024Q1

REPORT INFORMATION
  Report Type: Spontaneous
  Country: FR (occurrence: FR)
  Receive Date: 20240215
  Receipt Date: 20240215
  Transmission Date: 20240409
  Serious: Yes (Hospitalization)
  Sender: FDA-Public Use
  Company Number: None

PATIENT
  Age: 14 Year
  Sex: Female
  Weight: 67 kg

DRUGS (12)
  1. TRANEXAMIC ACID [Suspect]
     Active Substance: TRANEXAMIC ACID
     Indication: Haemorrhage
     Dosage: UNK
     Route: 048
     Dates: start: 20231230, end: 20240114
  2. COLPRONE [Concomitant]
     Active Substance: MEDROGESTONE
     Indication: Product used for unknown indication
     Dosage: UNK
     Route: 065
     Dates: start: 20231230
  3. HYDROCORTISONE [Concomitant]
     Active Substance: HYDROCORTISONE
     Indication: Product used for unknown indication
     Dosage: UNK
     Route: 065
     Dates: start: 20231231, end: 20240115
  4. MELATONIN [Concomitant]
     Active Substance: MELATONIN
     Indication: Product used for unknown indication
     Dosage: UNK
     Route: 065
     Dates: start: 20240103
  5. MORPHINE [Concomitant]
     Active Substance: MORPHINE
     Indication: Product used for unknown indication
     Dosage: UNK
     Route: 065
     Dates: start: 20240101
  6. NALOXONE MERCK [Concomitant]
     Indication: Product used for unknown indication
     Dosage: UNK,(0.4 MG/ 1 ML) (SOLUTION FOR INJECTION IN AMPOULE)
     Route: 065
     Dates: start: 20240108, end: 20240114
  7. SPIRONOLACTONE [Concomitant]
     Active Substance: SPIRONOLACTONE
     Indication: Product used for unknown indication
     Dosage: UNK
     Route: 065
     Dates: start: 20240112
  8. VANCOMYCIN [Concomitant]
     Active Substance: VANCOMYCIN
     Indication: Product used for unknown indication
     Dosage: UNK
     Route: 065
     Dates: start: 20240112, end: 20240114
  9. LIDOCAINE [Concomitant]
     Active Substance: LIDOCAINE
     Indication: Product used for unknown indication
     Dosage: UNK
     Route: 065
     Dates: start: 20240112
  10. FILGRASTIM [Concomitant]
     Active Substance: FILGRASTIM
     Indication: Product used for unknown indication
     Dosage: UNK (30 MU/0.5 ML)
     Route: 065
     Dates: start: 20240106
  11. ONDANSETRON [Interacting]
     Active Substance: ONDANSETRON
     Indication: Vomiting
     Dosage: UNK
     Route: 042
     Dates: start: 20231230
  12. PROBENECID [Interacting]
     Active Substance: PROBENECID
     Indication: Nephropathy toxic
     Dosage: UNK
     Route: 048
     Dates: start: 20240113, end: 20240126

REACTIONS (3)
  - Seizure [Recovering/Resolving]
  - Drug interaction [Recovering/Resolving]
  - Drug interaction [Recovering/Resolving]

NARRATIVE: CASE EVENT DATE: 20240113
